FAERS Safety Report 19222046 (Version 1)
Quarter: 2021Q2

REPORT INFORMATION
  Report Type: Spontaneous
  Country: US (occurrence: US)
  Receive Date: 20210505
  Receipt Date: 20210505
  Transmission Date: 20210717
  Serious: Yes (Disabling)
  Sender: FDA-Public Use
  Company Number: None

PATIENT
  Age: 48 Year
  Sex: Male
  Weight: 103.5 kg

DRUGS (1)
  1. OXYCODONE HCL 5MG IR TAB [Suspect]
     Active Substance: OXYCODONE HYDROCHLORIDE
     Indication: PAIN
     Dosage: ?          QUANTITY:1 TABLET(S);?
     Route: 048
     Dates: start: 20210429

REACTIONS (4)
  - Withdrawal syndrome [None]
  - Abdominal pain upper [None]
  - Manufacturing issue [None]
  - Nausea [None]

NARRATIVE: CASE EVENT DATE: 20210428
